FAERS Safety Report 5767811-1 (Version None)
Quarter: 2008Q2

REPORT INFORMATION
  Report Type: 
  Country: None (occurrence: None)
  Receive Date: 20080612
  Receipt Date: 20080601
  Transmission Date: 20081010
  Serious: Yes (Other)
  Sender: FDA-Public Use
  Company Number: PHEH2008US05064

PATIENT
  Sex: Female

DRUGS (4)
  1. RECLAST [Suspect]
     Dosage: UNK
     Dates: start: 20080101
  2. CALCIUM [Concomitant]
     Dosage: 1800 MG, UNK
  3. POTASSIUM CHLORIDE [Concomitant]
  4. VITAMIN D [Concomitant]

REACTIONS (3)
  - ANKLE FRACTURE [None]
  - BONE PAIN [None]
  - HIP FRACTURE [None]
